FAERS Safety Report 23509228 (Version 1)
Quarter: 2024Q1

REPORT INFORMATION
  Report Type: Spontaneous
  Country: US (occurrence: None)
  Receive Date: 20240209
  Receipt Date: 20240209
  Transmission Date: 20240410
  Serious: Yes (Disabling)
  Sender: FDA-Public Use
  Company Number: None

PATIENT
  Age: 50 Year
  Sex: Female
  Weight: 94.05 kg

DRUGS (10)
  1. VENLAFAXINE [Suspect]
     Active Substance: VENLAFAXINE HYDROCHLORIDE
     Indication: Depression
     Dosage: OTHER QUANTITY : 1 CAPSULE(S);?
     Route: 048
     Dates: start: 20150501
  2. VYVANSE [Concomitant]
     Active Substance: LISDEXAMFETAMINE DIMESYLATE
  3. ATORVASTATIN [Concomitant]
     Active Substance: ATORVASTATIN
  4. ALBUTEROL [Concomitant]
     Active Substance: ALBUTEROL
  5. BUPROPION [Concomitant]
     Active Substance: BUPROPION
  6. LAMOTRIGINE [Concomitant]
     Active Substance: LAMOTRIGINE
  7. MULTI-VITAMIN [Concomitant]
     Active Substance: .ALPHA.-TOCOPHEROL ACETATE, DL-\ASCORBIC ACID\CYANOCOBALAMIN\FLUORIDE ION\FOLIC ACID\NIACIN\PYRIDOXI
  8. VITAMIN D NOS [Concomitant]
     Active Substance: VITAMIN D NOS
  9. VITAMIN B12 [Concomitant]
     Active Substance: CYANOCOBALAMIN
  10. CALCIUM [Concomitant]
     Active Substance: CALCIUM

REACTIONS (13)
  - Withdrawal syndrome [None]
  - Tinnitus [None]
  - Vertigo [None]
  - Photophobia [None]
  - Hyperacusis [None]
  - Palpitations [None]
  - Hypoaesthesia [None]
  - Dementia [None]
  - Myocardial infarction [None]
  - Memory impairment [None]
  - Pyrexia [None]
  - Myalgia [None]
  - Product dose omission in error [None]

NARRATIVE: CASE EVENT DATE: 20240209
